FAERS Safety Report 16325122 (Version 3)
Quarter: 2023Q4

REPORT INFORMATION
  Report Type: Spontaneous
  Country: US (occurrence: US)
  Receive Date: 20190517
  Receipt Date: 20231222
  Transmission Date: 20240110
  Serious: Yes (Other)
  Sender: FDA-Public Use
  Company Number: US-GILEAD-2019-0407763

PATIENT
  Age: 42 Year
  Sex: Male
  Weight: 142.86 kg

DRUGS (31)
  1. VIREAD [Suspect]
     Active Substance: TENOFOVIR DISOPROXIL FUMARATE
     Indication: HIV infection
     Dosage: UNK
     Route: 048
     Dates: start: 2005
  2. VIREAD [Suspect]
     Active Substance: TENOFOVIR DISOPROXIL FUMARATE
     Dosage: UNK
     Route: 048
     Dates: start: 2011
  3. VIREAD [Suspect]
     Active Substance: TENOFOVIR DISOPROXIL FUMARATE
     Dosage: UNK
     Route: 048
     Dates: start: 201106
  4. TRUVADA [Suspect]
     Active Substance: EMTRICITABINE\TENOFOVIR DISOPROXIL FUMARATE
     Indication: HIV infection
     Dosage: UNK
     Route: 048
     Dates: start: 2005
  5. EMTRIVA [Concomitant]
     Active Substance: EMTRICITABINE
     Indication: HIV infection
  6. LEXIVA [Concomitant]
     Active Substance: FOSAMPRENAVIR CALCIUM
     Indication: HIV infection
  7. NORVIR [Concomitant]
     Active Substance: RITONAVIR
     Indication: HIV infection
  8. SUSTIVA [Concomitant]
     Active Substance: EFAVIRENZ
     Indication: HIV infection
  9. SENSIPAR [Concomitant]
     Active Substance: CINACALCET HYDROCHLORIDE
     Indication: Hyperparathyroidism secondary
  10. HECTOROL [Concomitant]
     Active Substance: DOXERCALCIFEROL
     Indication: Hyperparathyroidism secondary
  11. VENOFER [Concomitant]
     Active Substance: IRON SUCROSE
  12. ALBUTEROL [Concomitant]
     Active Substance: ALBUTEROL
     Indication: Asthma
  13. EPOGEN [Concomitant]
     Active Substance: ERYTHROPOIETIN
  14. BENZONATATE [Concomitant]
     Active Substance: BENZONATATE
     Indication: Cough
  15. EFAVIRENZ [Concomitant]
     Active Substance: EFAVIRENZ
     Indication: HIV infection
  16. EMTRICITABINE [Concomitant]
     Active Substance: EMTRICITABINE
  17. FOLIC ACID [Concomitant]
     Active Substance: FOLIC ACID
  18. HEPARIN [Concomitant]
     Active Substance: HEPARIN SODIUM
  19. INSULIN ASPART [Concomitant]
     Active Substance: INSULIN ASPART
  20. TUBERCULIN NOS [Concomitant]
     Active Substance: TUBERCULIN PURIFIED PROTEIN DERIVATIVE
  21. VANCOMYCIN [Concomitant]
     Active Substance: VANCOMYCIN
  22. MEROPENEM [Concomitant]
     Active Substance: MEROPENEM
  23. DEXTROSE [Concomitant]
     Active Substance: DEXTROSE\DEXTROSE MONOHYDRATE
  24. GLUCAGON [Concomitant]
     Active Substance: GLUCAGON\GLUCAGON HYDROCHLORIDE\WATER
  25. LANTUS [Concomitant]
     Active Substance: INSULIN GLARGINE
  26. CALCITRIOL [Concomitant]
     Active Substance: CALCITRIOL
  27. COREG [Concomitant]
     Active Substance: CARVEDILOL
  28. LASIX [Concomitant]
     Active Substance: FUROSEMIDE
  29. ACETAMINOPHEN [Concomitant]
     Active Substance: ACETAMINOPHEN
  30. DIPHENHYDRAMINE [Concomitant]
     Active Substance: DIPHENHYDRAMINE
  31. CLONIDINE [Concomitant]
     Active Substance: CLONIDINE

REACTIONS (10)
  - End stage renal disease [Not Recovered/Not Resolved]
  - Emotional distress [Not Recovered/Not Resolved]
  - Anhedonia [Not Recovered/Not Resolved]
  - Economic problem [Not Recovered/Not Resolved]
  - Anxiety [Not Recovered/Not Resolved]
  - Pain [Not Recovered/Not Resolved]
  - Blood creatinine increased [Not Recovered/Not Resolved]
  - Glomerular filtration rate decreased [Not Recovered/Not Resolved]
  - Gait disturbance [Unknown]
  - Dyspnoea [Unknown]

NARRATIVE: CASE EVENT DATE: 20120922
